FAERS Safety Report 8047307-7 (Version None)
Quarter: 2012Q1

REPORT INFORMATION
  Report Type: 
  Country: None (occurrence: None)
  Receive Date: 20120116
  Receipt Date: 20120112
  Transmission Date: 20120608
  Serious: Yes (Death)
  Sender: FDA-Public Use
  Company Number: SE-PURDUE-GBR-2011-0009272

PATIENT
  Sex: Male

DRUGS (6)
  1. ANTABUSE [Concomitant]
     Dosage: 400 MG, 3/WEEK
  2. OXYCODONE HYDROCHLORIDE [Suspect]
     Indication: PAIN
     Route: 048
  3. ESCITALOPRAM [Concomitant]
     Dosage: 15 MG, UNK
  4. LYRICA [Suspect]
     Indication: PAIN
     Dosage: 600 MG, UNK
     Route: 065
  5. MIRTAZAPINE [Concomitant]
     Dosage: 15 MG, UNK
  6. RISPERDAL [Concomitant]
     Dosage: 1 MG, UNK

REACTIONS (1)
  - POISONING [None]
